FAERS Safety Report 7944720-0 (Version None)
Quarter: 2011Q4

REPORT INFORMATION
  Report Type: 
  Country: None (occurrence: None)
  Receive Date: 20111129
  Receipt Date: 20111123
  Transmission Date: 20120403
  Serious: Yes (Other)
  Sender: FDA-Public Use
  Company Number: US-PFIZER INC-2011287172

PATIENT

DRUGS (1)
  1. CELEBREX [Suspect]
     Dosage: 200 MG, 1X/DAY

REACTIONS (4)
  - VASCULAR INSUFFICIENCY [None]
  - DENTAL PLAQUE [None]
  - PLASMA CELL DISORDER [None]
  - MULTIPLE MYELOMA [None]
